FAERS Safety Report 4431367-6 (Version None)
Quarter: 2004Q3

REPORT INFORMATION
  Report Type: 
  Country: None (occurrence: None)
  Receive Date: 20040820
  Receipt Date: 20040820
  Transmission Date: 20050211
  Serious: Yes (Life-Threatening)
  Sender: FDA-Public Use
  Company Number: None

PATIENT
  Age: 83 Year
  Sex: Female
  Weight: 68.04 kg

DRUGS (1)
  1. ROCEPHIN [Suspect]
     Dosage: 1 GM ONCE IV
     Route: 042
     Dates: start: 20040319, end: 20040319

REACTIONS (1)
  - HAEMOLYSIS [None]
